FAERS Safety Report 9466545 (Version 3)
Quarter: 2013Q3

REPORT INFORMATION
  Report Type: Report from Study
  Country: US (occurrence: US)
  Receive Date: 20130820
  Receipt Date: 20130917
  Transmission Date: 20140515
  Serious: Yes (Death, Hospitalization)
  Sender: FDA-Public Use
  Company Number: US-ACTELION-A-US2013-84827

PATIENT
  Age: 65 Year
  Sex: Male

DRUGS (5)
  1. VELETRI [Suspect]
     Indication: PULMONARY ARTERIAL HYPERTENSION
     Dosage: 40 NG/KG, PER MIN
     Route: 042
     Dates: start: 20120614, end: 20130808
  2. VELETRI [Suspect]
     Dosage: 54 NG/KG, PER MIN
     Route: 042
  3. LETAIRIS [Suspect]
  4. SILDENAFIL [Concomitant]
     Dosage: UNK
  5. SILDENAFIL [Concomitant]
     Dosage: UNK

REACTIONS (4)
  - Pulmonary arterial hypertension [Fatal]
  - Disease progression [Fatal]
  - Dyspnoea [Unknown]
  - Swelling [Unknown]
